FAERS Safety Report 8423630 (Version 4)
Quarter: 2012Q4

REPORT INFORMATION
  Report Type: 
  Country: FR (occurrence: FR)
  Receive Date: 20120224
  Receipt Date: 20121019
  Transmission Date: 20130627
  Serious: Yes (Hospitalization, Other)
  Sender: FDA-Public Use
  Company Number: FR-BRISTOL-MYERS SQUIBB COMPANY-16415309

PATIENT
  Age: 12 Year
  Sex: Female
  Weight: 44 kg

DRUGS (6)
  1. LYSODREN [Suspect]
     Indication: PITUITARY-DEPENDENT CUSHING^S SYNDROME
     Dosage: 3 df=3 tabs; Dose decreased to 2.5 tabs in Dec-2011
     Route: 048
     Dates: start: 201107, end: 20120130
  2. HYDROCORTISONE [Concomitant]
  3. URSOLVAN [Concomitant]
  4. VITAMIN K [Concomitant]
     Route: 030
  5. VITAMIN B [Concomitant]
     Route: 030
  6. ALPHA-TOCOPHEROL [Concomitant]

REACTIONS (8)
  - Hepatocellular injury [Recovering/Resolving]
  - Hepatitis acute [Recovering/Resolving]
  - Cholestasis [Unknown]
  - Hepatic encephalopathy [Unknown]
  - Altered state of consciousness [Recovering/Resolving]
  - Off label use [Unknown]
  - Lung disorder [Recovering/Resolving]
  - Rash maculo-papular [Recovered/Resolved]
